FAERS Safety Report 12899246 (Version 2)
Quarter: 2016Q4

REPORT INFORMATION
  Report Type: Report from Study
  Country: DE (occurrence: DE)
  Receive Date: 20161101
  Receipt Date: 20161212
  Transmission Date: 20170207
  Serious: Yes (Other)
  Sender: FDA-Public Use
  Company Number: DE-ACTELION-A-CH2016-144221

PATIENT
  Age: 22 Year
  Sex: Male
  Weight: 55.1 kg

DRUGS (2)
  1. ZAVESCA [Suspect]
     Active Substance: MIGLUSTAT
     Dosage: 200 MG, TID
     Route: 048
     Dates: start: 20150721
  2. ZAVESCA [Suspect]
     Active Substance: MIGLUSTAT
     Indication: NIEMANN-PICK DISEASE
     Dosage: UNK UNK, TID
     Route: 048
     Dates: start: 2012

REACTIONS (3)
  - Diarrhoea [Recovered/Resolved]
  - Seizure [Recovered/Resolved with Sequelae]
  - Sleep disorder [Unknown]

NARRATIVE: CASE EVENT DATE: 2012
